FAERS Safety Report 7608487-8 (Version None)
Quarter: 2011Q3

REPORT INFORMATION
  Report Type: 
  Country: None (occurrence: None)
  Receive Date: 20110714
  Receipt Date: 20110708
  Transmission Date: 20111222
  Serious: Yes (Other)
  Sender: FDA-Public Use
  Company Number: US-BAYER-2011-047379

PATIENT
  Age: 16 Year
  Sex: Female
  Weight: 62.585 kg

DRUGS (1)
  1. MIRENA [Suspect]
     Indication: CONTRACEPTION
     Dosage: 20 MCG/24HR, CONT
     Route: 015
     Dates: start: 20110527, end: 20110527

REACTIONS (4)
  - VOMITING [None]
  - PELVIC PAIN [None]
  - LOSS OF CONSCIOUSNESS [None]
  - PAIN [None]
